FAERS Safety Report 19911186 (Version 2)
Quarter: 2021Q4

REPORT INFORMATION
  Report Type: Report from Study
  Country: US (occurrence: US)
  Receive Date: 20211004
  Receipt Date: 20211007
  Transmission Date: 20220303
  Serious: Yes (Hospitalization, Other)
  Sender: FDA-Public Use
  Company Number: US-BRISTOL-MYERS SQUIBB COMPANY-BMS-2021-098400

PATIENT
  Age: 61 Year
  Sex: Male
  Weight: 57 kg

DRUGS (3)
  1. NIVOLUMAB [Suspect]
     Active Substance: NIVOLUMAB
     Indication: Small cell lung cancer
     Dosage: UNK
     Route: 065
  2. IPILIMUMAB [Suspect]
     Active Substance: IPILIMUMAB
     Indication: Small cell lung cancer
     Dosage: UNK
     Route: 065
  3. LURBINECTEDIN [Suspect]
     Active Substance: LURBINECTEDIN
     Indication: Small cell lung cancer
     Dosage: UNK
     Route: 065

REACTIONS (2)
  - Intestinal obstruction [Unknown]
  - Cerebrovascular accident [Unknown]

NARRATIVE: CASE EVENT DATE: 20210925
